FAERS Safety Report 11505806 (Version 3)
Quarter: 2015Q3

REPORT INFORMATION
  Report Type: Spontaneous
  Country: IT (occurrence: IT)
  Receive Date: 20150915
  Receipt Date: 20150928
  Transmission Date: 20151125
  Serious: Yes (Other)
  Sender: FDA-Public Use
  Company Number: IT-AMGEN-ITASP2015094157

PATIENT
  Age: 43 Year
  Sex: Male

DRUGS (3)
  1. FOLINA [Concomitant]
     Active Substance: FOLIC ACID
     Dosage: 1 DOSAGE FORM ON THURSDAY
     Route: 048
     Dates: start: 20100223, end: 20150512
  2. ENBREL [Suspect]
     Active Substance: ETANERCEPT
     Indication: PSORIATIC ARTHROPATHY
     Dosage: 50 MG, WEEKLY
     Route: 058
     Dates: start: 20100223
  3. METOTREXATO SANDOZ                 /00113801/ [Concomitant]
     Indication: PSORIATIC ARTHROPATHY
     Dosage: 10 MG, 4 TABLETS ON TUESDAY
     Route: 048
     Dates: start: 20100223, end: 20150512

REACTIONS (4)
  - Pyrexia [Unknown]
  - Cough [Unknown]
  - Nasopharyngitis [Unknown]
  - Parainfluenzae virus infection [Unknown]

NARRATIVE: CASE EVENT DATE: 20150512
